FAERS Safety Report 5074141-2 (Version None)
Quarter: 2006Q3

REPORT INFORMATION
  Report Type: 
  Country: None (occurrence: None)
  Receive Date: 20060802
  Receipt Date: 20060724
  Transmission Date: 20061208
  Serious: Yes (Other)
  Sender: FDA-Public Use
  Company Number: 2006091279

PATIENT
  Age: 60 Year
  Sex: Male
  Weight: 81.6475 kg

DRUGS (8)
  1. LIPITOR [Suspect]
     Indication: BLOOD CHOLESTEROL INCREASED
     Dosage: 80 MG (80 MG, 1 IN 1 D)   6 YRS AGO
  2. PROSCAR [Concomitant]
  3. ZETIA [Concomitant]
  4. LEVOTHYROXINE SODIUM [Concomitant]
  5. TOPROL-XL [Concomitant]
  6. METFORMIN [Concomitant]
  7. AVANDIA [Concomitant]
  8. ALTACE [Concomitant]

REACTIONS (4)
  - BONE PAIN [None]
  - MUSCLE SPASMS [None]
  - MYALGIA [None]
  - PAIN IN EXTREMITY [None]
